FAERS Safety Report 4425516-3 (Version None)
Quarter: 2004Q3

REPORT INFORMATION
  Report Type: 
  Country: None (occurrence: None)
  Receive Date: 20040809
  Receipt Date: 20040729
  Transmission Date: 20050211
  Serious: Yes (Hospitalization)
  Sender: FDA-Public Use
  Company Number: 2004046351

PATIENT
  Age: 51 Year
  Sex: Female

DRUGS (2)
  1. VISINE-A [Suspect]
     Indication: SEASONAL ALLERGY
     Dosage: QD, OPHTHALMIC
     Route: 047
     Dates: start: 20040620, end: 20040703
  2. CETIRIZINE HCL [Concomitant]

REACTIONS (2)
  - EPISTAXIS [None]
  - SINUSITIS [None]
